FAERS Safety Report 4443635-2 (Version None)
Quarter: 2004Q3

REPORT INFORMATION
  Report Type: 
  Country: None (occurrence: None)
  Receive Date: 20040903
  Receipt Date: 20040903
  Transmission Date: 20050211
  Serious: Yes (Life-Threatening, Hospitalization)
  Sender: FDA-Public Use
  Company Number: None

PATIENT
  Age: 57 Year
  Sex: Male
  Weight: 113 kg

DRUGS (2)
  1. INTEGRILIN 0.75MG/ML MILLENIUM [Suspect]
     Dosage: 180/2 ONCE INTRAVENOUS
     Route: 042
     Dates: start: 20040829, end: 20040830
  2. LOVENOX [Suspect]
     Dosage: 55MG ONCE INTRAVENOUS
     Route: 042
     Dates: start: 20040829, end: 20040829

REACTIONS (2)
  - INFUSION RELATED REACTION [None]
  - THROMBOCYTOPENIA [None]
